FAERS Safety Report 7056519-0 (Version None)
Quarter: 2010Q4

REPORT INFORMATION
  Report Type: 
  Country: None (occurrence: None)
  Receive Date: 20101021
  Receipt Date: 20101013
  Transmission Date: 20110411
  Serious: Yes (Disabling, Other)
  Sender: FDA-Public Use
  Company Number: FR-GILEAD-2010-0031617

PATIENT
  Sex: Male
  Weight: 74 kg

DRUGS (1)
  1. VIREAD [Suspect]
     Indication: HEPATITIS B
     Route: 048
     Dates: start: 20100301, end: 20100430

REACTIONS (8)
  - ASTHENIA [None]
  - DEPRESSION [None]
  - GAIT DISTURBANCE [None]
  - MUSCULAR WEAKNESS [None]
  - MUSCULOSKELETAL PAIN [None]
  - PSORIASIS [None]
  - VISUAL IMPAIRMENT [None]
  - WEIGHT DECREASED [None]
